FAERS Safety Report 8933484 (Version 1)
Quarter: 2012Q4

REPORT INFORMATION
  Report Type: 
  Country: US (occurrence: US)
  Receive Date: 20121128
  Receipt Date: 20121128
  Transmission Date: 20130627
  Serious: No
  Sender: FDA-Public Use
  Company Number: US-ABBOTT-12P-163-1004859-00

PATIENT
  Sex: Male
  Weight: 79.45 kg

DRUGS (2)
  1. ANDROGEL [Suspect]
     Indication: BLOOD TESTOSTERONE DECREASED
     Dates: start: 201210
  2. ANDROGEL [Suspect]
     Dosage: Androgel 1%
     Dates: start: 2004, end: 201210

REACTIONS (1)
  - Ejaculation disorder [Not Recovered/Not Resolved]
